FAERS Safety Report 7543505-7 (Version None)
Quarter: 2011Q2

REPORT INFORMATION
  Report Type: 
  Country: None (occurrence: None)
  Receive Date: 20110524
  Receipt Date: 20110210
  Transmission Date: 20111010
  Serious: No
  Sender: FDA-Public Use
  Company Number: 022939

PATIENT
  Sex: Female
  Weight: 43.5 kg

DRUGS (5)
  1. CIMZIA [Suspect]
     Indication: CROHN'S DISEASE
     Dosage: (SUBCUTANEOUS) ; (2 SHOTS SUBCUTANEOUS)
     Route: 058
     Dates: start: 20100614
  2. CIMZIA [Suspect]
     Indication: CROHN'S DISEASE
     Dosage: (SUBCUTANEOUS) ; (2 SHOTS SUBCUTANEOUS)
     Route: 058
     Dates: start: 20100809, end: 20101004
  3. METHOTREXATE [Concomitant]
  4. FLAGYL [Concomitant]
  5. VITAMIN B12 /00056201/ [Concomitant]

REACTIONS (3)
  - UPPER RESPIRATORY TRACT INFECTION [None]
  - BRONCHITIS [None]
  - BACK PAIN [None]
